FAERS Safety Report 16789843 (Version 1)
Quarter: 2019Q3

REPORT INFORMATION
  Report Type: Spontaneous
  Country: AU (occurrence: AU)
  Receive Date: 20190910
  Receipt Date: 20190910
  Transmission Date: 20191005
  Serious: Yes (Life-Threatening, Hospitalization, Other)
  Sender: FDA-Public Use
  Company Number: AU-LUPIN PHARMACEUTICALS INC.-2019-05712

PATIENT
  Age: 64 Year
  Sex: Male

DRUGS (2)
  1. AZITHROMYCIN ANHYDROUS. [Suspect]
     Active Substance: AZITHROMYCIN ANHYDROUS
     Indication: PNEUMONIA
     Dosage: 500 MILLIGRAM, QD
     Route: 042
  2. CEFTRIAXONE. [Concomitant]
     Active Substance: CEFTRIAXONE
     Indication: PNEUMONIA
     Dosage: 1 GRAM, QD
     Route: 042

REACTIONS (13)
  - Cyanosis [Recovered/Resolved]
  - Flushing [Unknown]
  - Nausea [Unknown]
  - Blood glucose increased [Unknown]
  - Acute kidney injury [Unknown]
  - Unresponsive to stimuli [Recovered/Resolved]
  - Hypotension [Recovered/Resolved]
  - Tachypnoea [Recovered/Resolved]
  - Feeling hot [Unknown]
  - Liver function test abnormal [Unknown]
  - Electrocardiogram QT prolonged [Recovered/Resolved]
  - Hyperhidrosis [Unknown]
  - Coma scale abnormal [Recovered/Resolved]
